FAERS Safety Report 10668345 (Version 2)
Quarter: 2015Q1

REPORT INFORMATION
  Report Type: Spontaneous
  Country: DE (occurrence: DE)
  Receive Date: 20141222
  Receipt Date: 20150306
  Transmission Date: 20150720
  Serious: Yes (Other)
  Sender: FDA-Public Use
  Company Number: DE-TEVA-529440GER

PATIENT
  Age: 29 Year
  Sex: Female
  Weight: 95 kg

DRUGS (2)
  1. CEFUROXIM [Concomitant]
     Active Substance: CEFUROXIME
     Dosage: 1000 MILLIGRAM DAILY;
     Route: 048
     Dates: start: 20141018, end: 20141123
  2. METRONIDAZOL [Suspect]
     Active Substance: METRONIDAZOLE
     Indication: POSTOPERATIVE WOUND INFECTION
     Route: 048
     Dates: start: 20141029, end: 20141101

REACTIONS (1)
  - VIIth nerve paralysis [Recovered/Resolved]

NARRATIVE: CASE EVENT DATE: 20141101
